FAERS Safety Report 4963553-0 (Version None)
Quarter: 2006Q1

REPORT INFORMATION
  Report Type: 
  Country: None (occurrence: None)
  Receive Date: 20060330
  Receipt Date: 20060324
  Transmission Date: 20060701
  Serious: Yes (Hospitalization)
  Sender: FDA-Public Use
  Company Number: 2006040888

PATIENT
  Age: 61 Year
  Sex: Male

DRUGS (6)
  1. TAHOR (ATORVASTATIN) [Suspect]
     Indication: DRESSLER'S SYNDROME
     Dosage: (40 MG)
     Dates: end: 20060101
  2. TAHOR (ATORVASTATIN) [Suspect]
     Indication: HYPERCHOLESTEROLAEMIA
     Dosage: (40 MG)
     Dates: end: 20060101
  3. PLAVIX [Concomitant]
  4. BISOPROLOL FUMARATE [Concomitant]
  5. PERINDOPRIL ERUMINE [Concomitant]
  6. KARDEGIC (ACETYLSALICYLATE LYSINE) [Concomitant]

REACTIONS (2)
  - COLITIS MICROSCOPIC [None]
  - WEIGHT DECREASED [None]
